FAERS Safety Report 16207466 (Version 1)
Quarter: 2019Q2

REPORT INFORMATION
  Report Type: Spontaneous
  Country: US (occurrence: US)
  Receive Date: 20190417
  Receipt Date: 20190417
  Transmission Date: 20190711
  Serious: No
  Sender: FDA-Public Use
  Company Number: US-PFIZER INC-2019162295

PATIENT
  Age: 77 Year

DRUGS (1)
  1. LYRICA [Suspect]
     Active Substance: PREGABALIN
     Indication: SCIATICA
     Dosage: UNK

REACTIONS (5)
  - Inner ear disorder [Unknown]
  - Impaired driving ability [Unknown]
  - Dizziness [Unknown]
  - Gait disturbance [Unknown]
  - Malaise [Unknown]
